FAERS Safety Report 10933488 (Version 1)
Quarter: 2015Q1

REPORT INFORMATION
  Report Type: Spontaneous
  Country: FR (occurrence: FR)
  Receive Date: 20150320
  Receipt Date: 20150320
  Transmission Date: 20150721
  Serious: Yes (Hospitalization)
  Sender: FDA-Public Use
  Company Number: FR-ROCHE-1553964

PATIENT
  Age: 83 Year
  Sex: Female

DRUGS (5)
  1. APRANAX [Suspect]
     Active Substance: NAPROXEN
     Indication: PRODUCT USED FOR UNKNOWN INDICATION
     Route: 048
     Dates: start: 201410
  2. TAREG [Concomitant]
     Active Substance: VALSARTAN
  3. KARDEGIC [Concomitant]
     Active Substance: ASPIRIN LYSINE
  4. LAMICTAL [Concomitant]
     Active Substance: LAMOTRIGINE
  5. NEURONTIN [Concomitant]
     Active Substance: GABAPENTIN

REACTIONS (2)
  - Petechiae [Recovered/Resolved]
  - Thrombocytopenia [Recovered/Resolved]

NARRATIVE: CASE EVENT DATE: 20141015
